FAERS Safety Report 6137884-5 (Version None)
Quarter: 2009Q1

REPORT INFORMATION
  Report Type: 
  Country: None (occurrence: None)
  Receive Date: 20090327
  Receipt Date: 20090313
  Transmission Date: 20090719
  Serious: Yes (Other)
  Sender: FDA-Public Use
  Company Number: 20090084 /

PATIENT
  Age: 74 Year
  Sex: Female
  Weight: 68.0396 kg

DRUGS (1)
  1. VENOFER [Suspect]
     Indication: IRON DEFICIENCY ANAEMIA
     Dosage: 200 MG INTRAVENOUS
     Route: 042
     Dates: start: 20060305, end: 20090310

REACTIONS (6)
  - BODY TEMPERATURE INCREASED [None]
  - CHEST PAIN [None]
  - ERYTHEMA [None]
  - FLUSHING [None]
  - INFUSION RELATED REACTION [None]
  - PARAESTHESIA [None]
